FAERS Safety Report 15617607 (Version 1)
Quarter: 2018Q4

REPORT INFORMATION
  Report Type: Spontaneous
  Country: US (occurrence: US)
  Receive Date: 20181114
  Receipt Date: 20181114
  Transmission Date: 20190205
  Serious: No
  Sender: FDA-Public Use
  Company Number: US-MIST-TIR-2018-0294

PATIENT
  Age: 51 Year
  Sex: Female

DRUGS (2)
  1. TIROSINT [Suspect]
     Active Substance: LEVOTHYROXINE SODIUM
     Indication: THYROIDECTOMY
     Dosage: 50MCG DAILY
     Route: 048
     Dates: start: 201710, end: 201712
  2. TIROSINT [Suspect]
     Active Substance: LEVOTHYROXINE SODIUM
     Indication: THYROIDECTOMY
     Dosage: 25MCG DAILY
     Route: 048
     Dates: start: 201712

REACTIONS (11)
  - Pharyngeal oedema [Unknown]
  - Photosensitivity reaction [Unknown]
  - Thyroid function test abnormal [Unknown]
  - Trichorrhexis [Unknown]
  - Drug level above therapeutic [Unknown]
  - Blood pressure decreased [Unknown]
  - Insomnia [Unknown]
  - Tachycardia [Unknown]
  - Drug level below therapeutic [Unknown]
  - Fatigue [Unknown]
  - Dyspnoea [Unknown]

NARRATIVE: CASE EVENT DATE: 201710
